FAERS Safety Report 7080931-7 (Version None)
Quarter: 2010Q4

REPORT INFORMATION
  Report Type: 
  Country: None (occurrence: None)
  Receive Date: 20101102
  Receipt Date: 20101102
  Transmission Date: 20110411
  Serious: No
  Sender: FDA-Public Use
  Company Number: None

PATIENT
  Age: 53 Year
  Sex: Female
  Weight: 67.1324 kg

DRUGS (1)
  1. PAXIL [Suspect]
     Indication: ANXIETY
     Dosage: ONE PILL A DAY BUCCAL
     Route: 002
     Dates: start: 20050407, end: 20101020

REACTIONS (1)
  - DRUG WITHDRAWAL SYNDROME [None]
